FAERS Safety Report 16975954 (Version 1)
Quarter: 2019Q4

REPORT INFORMATION
  Report Type: Spontaneous
  Country: US (occurrence: US)
  Receive Date: 20191030
  Receipt Date: 20191030
  Transmission Date: 20200122
  Serious: Yes (Hospitalization, Other)
  Sender: FDA-Public Use
  Company Number: US-SHIRE-US201935710

PATIENT
  Sex: Female

DRUGS (1)
  1. GATTEX [Suspect]
     Active Substance: TEDUGLUTIDE\WATER
     Indication: PRODUCT USED FOR UNKNOWN INDICATION
     Dosage: 0.540 (UNIT UNKNOWN)
     Route: 058
     Dates: start: 20180319

REACTIONS (3)
  - Product dose omission [Recovered/Resolved]
  - Vascular device infection [Recovered/Resolved]
  - Loss of consciousness [Recovered/Resolved]
